FAERS Safety Report 5412995-8 (Version None)
Quarter: 2007Q3

REPORT INFORMATION
  Report Type: 
  Country: None (occurrence: None)
  Receive Date: 20070813
  Receipt Date: 20070803
  Transmission Date: 20080115
  Serious: Yes (Other)
  Sender: FDA-Public Use
  Company Number: DE-PFIZER INC-2007038542

PATIENT
  Sex: Female

DRUGS (2)
  1. TRANEXAMIC ACID (IV) [Suspect]
     Indication: INTESTINAL HAEMORRHAGE
     Route: 042
     Dates: start: 20070408, end: 20070413
  2. NOVOSEVEN [Concomitant]
     Indication: INTESTINAL HAEMORRHAGE
     Route: 042

REACTIONS (1)
  - BRAIN NEOPLASM [None]
